FAERS Safety Report 21653365 (Version 1)
Quarter: 2022Q4

REPORT INFORMATION
  Report Type: Spontaneous
  Country: IT (occurrence: IT)
  Receive Date: 20221128
  Receipt Date: 20221128
  Transmission Date: 20230113
  Serious: Yes (Life-Threatening)
  Sender: FDA-Public Use
  Company Number: IT-MINISAL02-893159

PATIENT
  Age: 81 Year
  Sex: Female

DRUGS (5)
  1. METFORMIN [Suspect]
     Active Substance: METFORMIN HYDROCHLORIDE
     Indication: Product used for unknown indication
     Dosage: 17000 MILLIGRAM, IN TOTAL
     Route: 048
     Dates: start: 20221103, end: 20221103
  2. NIFEDIPINE [Suspect]
     Active Substance: NIFEDIPINE
     Indication: Product used for unknown indication
     Dosage: 420 MILLIGRAM, IN TOTAL
     Route: 048
     Dates: start: 20221103, end: 20221103
  3. ATENOLOL [Suspect]
     Active Substance: ATENOLOL
     Indication: Product used for unknown indication
     Dosage: 1400 MILLIGRAM, IN TOTAL
     Route: 048
     Dates: start: 20221103, end: 20221103
  4. CANDESARTAN CILEXETIL [Suspect]
     Active Substance: CANDESARTAN CILEXETIL
     Indication: Product used for unknown indication
     Dosage: 440 MILLIGRAM, IN TOTAL
     Route: 048
     Dates: start: 20221103, end: 20221103
  5. EZETIMIBE\ROSUVASTATIN CALCIUM [Suspect]
     Active Substance: EZETIMIBE\ROSUVASTATIN CALCIUM
     Indication: Product used for unknown indication
     Dosage: 15 DOSAGE FORM, IN TOTAL
     Route: 048
     Dates: start: 20221103, end: 20221103

REACTIONS (4)
  - Drug abuse [Unknown]
  - Hypotension [Unknown]
  - Metabolic acidosis [Unknown]
  - Cardiac arrest [Unknown]

NARRATIVE: CASE EVENT DATE: 20221103
